FAERS Safety Report 26060152 (Version 1)
Quarter: 2025Q4

REPORT INFORMATION
  Report Type: Spontaneous
  Country: US (occurrence: US)
  Receive Date: 20251118
  Receipt Date: 20251118
  Transmission Date: 20260119
  Serious: Yes (Other)
  Sender: BRISTOL-MYERS SQUIBB COMPANY
  Company Number: US-BRISTOL-MYERS SQUIBB COMPANY-2025-154487

PATIENT
  Age: 56 Year
  Sex: Female
  Weight: 79.39 kg

DRUGS (18)
  1. REVLIMID [Suspect]
     Active Substance: LENALIDOMIDE
     Indication: Plasma cell myeloma
     Dosage: TAKE 1 CAPSULE BY MOUTH DAILY FOR 21 DAYS ON, 7 DAYS OFF
     Route: 048
     Dates: start: 20250925, end: 20251023
  2. REVLIMID [Suspect]
     Active Substance: LENALIDOMIDE
  3. acyclovir (Zovirax) [Concomitant]
     Indication: Product used for unknown indication
     Dosage: STRENGTH: 400 MG, 800 MG
  4. amLODIPine-olmesartan (Azor) [Concomitant]
     Indication: Product used for unknown indication
     Dosage: 5-20 MG
  5. ASPIRIN [Concomitant]
     Active Substance: ASPIRIN
     Indication: Product used for unknown indication
  6. ZARXIO [Concomitant]
     Active Substance: FILGRASTIM-SNDZ
     Indication: Product used for unknown indication
     Dosage: 300 MCG/0.5 ML
  7. DIFLUCAN [Concomitant]
     Active Substance: FLUCONAZOLE
     Indication: Product used for unknown indication
  8. LEVAQUIN [Concomitant]
     Active Substance: LEVOFLOXACIN
     Indication: Product used for unknown indication
  9. linezolid (Zyvox) [Concomitant]
     Indication: Product used for unknown indication
  10. magnesium oxide (Mag-Ox) [Concomitant]
     Indication: Product used for unknown indication
  11. ZOFRAN [Concomitant]
     Active Substance: ONDANSETRON HYDROCHLORIDE
     Indication: Product used for unknown indication
  12. ondansetron ODT (Zofran-ODT) [Concomitant]
     Indication: Product used for unknown indication
     Dosage: DISINTEGRATING TABLET
  13. PROTONIX [Concomitant]
     Active Substance: PANTOPRAZOLE SODIUM
     Indication: Product used for unknown indication
  14. Potassium chloride CR (KLOR-CON M10) [Concomitant]
     Indication: Product used for unknown indication
     Dosage: ER TABLET
  15. sodium chloride (Ocean) [Concomitant]
     Indication: Product used for unknown indication
     Route: 045
  16. BACTRIM DS [Concomitant]
     Active Substance: SULFAMETHOXAZOLE\TRIMETHOPRIM
     Indication: Product used for unknown indication
     Dosage: 800-160 MG PER TABLET
  17. BACTRIM DS [Concomitant]
     Active Substance: SULFAMETHOXAZOLE\TRIMETHOPRIM
     Dosage: 400-80
  18. BACTRIM [Concomitant]
     Active Substance: SULFAMETHOXAZOLE\TRIMETHOPRIM
     Indication: Product used for unknown indication
     Dosage: 400-80 MG

REACTIONS (1)
  - Plasma cell myeloma recurrent [Unknown]

NARRATIVE: CASE EVENT DATE: 20251023
